FAERS Safety Report 25804131 (Version 1)
Quarter: 2025Q3

REPORT INFORMATION
  Report Type: Spontaneous
  Country: JP (occurrence: JP)
  Receive Date: 20250915
  Receipt Date: 20250915
  Transmission Date: 20251021
  Serious: Yes (Hospitalization)
  Sender: AMGEN
  Company Number: JP-AMGEN-JPNSP2025180129

PATIENT
  Age: 82 Year
  Sex: Female
  Weight: 49 kg

DRUGS (9)
  1. BEVACIZUMAB [Suspect]
     Active Substance: BEVACIZUMAB
     Indication: Hepatocellular carcinoma
     Route: 065
  2. ATEZOLIZUMAB [Suspect]
     Active Substance: ATEZOLIZUMAB
     Indication: Hepatocellular carcinoma
     Route: 065
  3. URSODIOL [Concomitant]
     Active Substance: URSODIOL
  4. AMLODIPINE [Concomitant]
     Active Substance: AMLODIPINE BESYLATE
  5. CANDESARTAN [Concomitant]
     Active Substance: CANDESARTAN
  6. FEBUXOSTAT [Concomitant]
     Active Substance: FEBUXOSTAT
  7. ELDECALCITOL [Concomitant]
     Active Substance: ELDECALCITOL
  8. RISEDRONATE SODIUM [Concomitant]
     Active Substance: RISEDRONATE SODIUM
     Dosage: 75 MILLIGRAM, QMO
  9. TRIAZOLAM [Concomitant]
     Active Substance: TRIAZOLAM

REACTIONS (5)
  - Adrenocorticotropic hormone deficiency [Unknown]
  - Type 1 diabetes mellitus [Unknown]
  - Hepatic encephalopathy [Unknown]
  - Hypothyroidism [Unknown]
  - Off label use [Unknown]
